FAERS Safety Report 10550819 (Version 1)
Quarter: 2014Q4

REPORT INFORMATION
  Report Type: Spontaneous
  Country: US (occurrence: None)
  Receive Date: 20141028
  Receipt Date: 20141028
  Transmission Date: 20150529
  Serious: Yes (Life-Threatening, Disabling)
  Sender: FDA-Public Use
  Company Number: None

PATIENT
  Age: 30 Year
  Sex: Female
  Weight: 67.59 kg

DRUGS (1)
  1. NUVARING [Suspect]
     Active Substance: ETHINYL ESTRADIOL\ETONOGESTREL
     Indication: CONTRACEPTION
     Dosage: 1 RING IN FOR 3 WKS, VAGINAL?
     Route: 067

REACTIONS (4)
  - Benign hepatic neoplasm [None]
  - Abdominal pain [None]
  - Burning sensation [None]
  - Gastric ulcer [None]

NARRATIVE: CASE EVENT DATE: 20140301
